FAERS Safety Report 18136918 (Version 3)
Quarter: 2020Q3

REPORT INFORMATION
  Report Type: Report from Study
  Country: US (occurrence: US)
  Receive Date: 20200811
  Receipt Date: 20200916
  Transmission Date: 20201103
  Serious: Yes (Hospitalization, Other)
  Sender: FDA-Public Use
  Company Number: US-SEATTLE GENETICS-2020SGN03525

PATIENT
  Sex: Female

DRUGS (2)
  1. TUCATINIB [Suspect]
     Active Substance: TUCATINIB
     Indication: PRODUCT USED FOR UNKNOWN INDICATION
     Dosage: 300 MG, BID
     Dates: start: 20200722, end: 20200803
  2. HERCEPTIN [Concomitant]
     Active Substance: TRASTUZUMAB
     Dosage: UNK
     Dates: start: 20200728, end: 20200728

REACTIONS (5)
  - Disease progression [Unknown]
  - Pseudocirrhosis [Unknown]
  - Hepatic failure [Unknown]
  - Blood alkaline phosphatase increased [Recovering/Resolving]
  - Ascites [Recovered/Resolved]
